FAERS Safety Report 7955027-X (Version None)
Quarter: 2011Q4

REPORT INFORMATION
  Report Type: 
  Country: None (occurrence: None)
  Receive Date: 20111202
  Receipt Date: 20111123
  Transmission Date: 20120403
  Serious: Yes (Hospitalization)
  Sender: FDA-Public Use
  Company Number: US-ABBOTT-11P-163-0879441-00

PATIENT
  Sex: Male

DRUGS (9)
  1. CLONIDINE [Concomitant]
     Indication: ANXIETY
  2. REMERON [Concomitant]
     Indication: DEPRESSION
     Dosage: AT HOUR OF SLEEP
  3. HUMIRA [Suspect]
     Indication: CROHN'S DISEASE
     Dates: start: 20090101
  4. IMURAN [Concomitant]
     Indication: PRODUCT USED FOR UNKNOWN INDICATION
  5. PHENERGAN [Concomitant]
     Indication: NAUSEA
  6. FENTANYL [Concomitant]
     Indication: PAIN
     Dosage: PATCH - 100MCG/HR
  7. ENTOCORT EC [Concomitant]
     Indication: PRODUCT USED FOR UNKNOWN INDICATION
  8. TPN [Concomitant]
     Indication: PRODUCT USED FOR UNKNOWN INDICATION
  9. REMERON [Concomitant]
     Indication: INSOMNIA

REACTIONS (3)
  - STAPHYLOCOCCAL INFECTION [None]
  - SEPSIS [None]
  - HAEMORRHAGE [None]
